FAERS Safety Report 5064746-7 (Version None)
Quarter: 2006Q3

REPORT INFORMATION
  Report Type: 
  Country: None (occurrence: None)
  Receive Date: 20060728
  Receipt Date: 20060719
  Transmission Date: 20061208
  Serious: Yes (Other)
  Sender: FDA-Public Use
  Company Number: 2006UW14753

PATIENT
  Age: 45 Year
  Sex: Female
  Weight: 113.9 kg

DRUGS (1)
  1. TOPROL-XL [Suspect]
     Indication: HYPERTENSION
     Route: 048
     Dates: start: 20060501

REACTIONS (7)
  - DYSPNOEA [None]
  - FLUID RETENTION [None]
  - HEART RATE DECREASED [None]
  - LYMPHOEDEMA [None]
  - NAUSEA [None]
  - PALPITATIONS [None]
  - PARESIS [None]
